FAERS Safety Report 7585557-4 (Version None)
Quarter: 2011Q2

REPORT INFORMATION
  Report Type: 
  Country: None (occurrence: None)
  Receive Date: 20110628
  Receipt Date: 20110628
  Transmission Date: 20111010
  Serious: Yes (Death)
  Sender: FDA-Public Use
  Company Number: None

PATIENT
  Sex: Female
  Weight: 63.05 kg

DRUGS (1)
  1. ATIVAN [Suspect]
     Dates: start: 20101013, end: 20101018

REACTIONS (1)
  - ADVERSE EVENT [None]
